FAERS Safety Report 16902271 (Version 1)
Quarter: 2019Q4

REPORT INFORMATION
  Report Type: Spontaneous
  Country: IT (occurrence: IT)
  Receive Date: 20191010
  Receipt Date: 20191010
  Transmission Date: 20200122
  Serious: Yes (Hospitalization)
  Sender: FDA-Public Use
  Company Number: IT-TEVA-2019-IT-1118939

PATIENT
  Age: 67 Year
  Sex: Male

DRUGS (6)
  1. VANCOMYCIN HYDROCHLORIDE. [Suspect]
     Active Substance: VANCOMYCIN HYDROCHLORIDE
     Indication: LOCALISED INFECTION
     Route: 042
     Dates: start: 20190706, end: 20190708
  2. LANTUS [Concomitant]
     Active Substance: INSULIN GLARGINE
  3. CEFTRIAXONE DISODIUM [Suspect]
     Active Substance: CEFTRIAXONE
     Indication: LOCALISED INFECTION
     Route: 030
     Dates: start: 20190706, end: 20190708
  4. HUMALOG [Concomitant]
     Active Substance: INSULIN LISPRO
  5. DICLOFENAC SODIUM. [Suspect]
     Active Substance: DICLOFENAC SODIUM
     Indication: PAIN
     Route: 030
     Dates: start: 20190706, end: 20190708
  6. INDOMETHACIN SODIUM TRIHYDRATE [Suspect]
     Active Substance: INDOMETHACIN SODIUM
     Indication: PAIN
     Dosage: 3 DOSAGE FORMS
     Route: 048
     Dates: start: 20190706, end: 20190708

REACTIONS (1)
  - Rash pruritic [Recovering/Resolving]

NARRATIVE: CASE EVENT DATE: 20190706
